FAERS Safety Report 12969389 (Version 1)
Quarter: 2016Q4

REPORT INFORMATION
  Report Type: Spontaneous
  Country: SE (occurrence: SE)
  Receive Date: 20161123
  Receipt Date: 20161123
  Transmission Date: 20170207
  Serious: Yes (Other)
  Sender: FDA-Public Use
  Company Number: SE-PFIZER INC-2016539839

PATIENT
  Age: 70 Year
  Sex: Male

DRUGS (1)
  1. CABASER [Suspect]
     Active Substance: CABERGOLINE
     Indication: MALIGNANT PITUITARY TUMOUR
     Dosage: UNK
     Dates: end: 20150710

REACTIONS (1)
  - Pulmonary fibrosis [Unknown]

NARRATIVE: CASE EVENT DATE: 201405
